FAERS Safety Report 7454979-4 (Version None)
Quarter: 2011Q2

REPORT INFORMATION
  Report Type: 
  Country: None (occurrence: None)
  Receive Date: 20110503
  Receipt Date: 20110422
  Transmission Date: 20111010
  Serious: Yes (Hospitalization)
  Sender: FDA-Public Use
  Company Number: JP-BRISTOL-MYERS SQUIBB COMPANY-15705726

PATIENT
  Age: 45 Year
  Sex: Male
  Weight: 59 kg

DRUGS (8)
  1. DEPAS [Suspect]
     Indication: INSOMNIA
     Dosage: DEPAS 1MG TAB
     Route: 048
     Dates: start: 20091105
  2. MIRTAZAPINE [Suspect]
     Indication: INSOMNIA
     Dosage: REFLEX TAB
     Route: 048
     Dates: start: 20101209
  3. STOCRIN TABS [Suspect]
     Indication: ACQUIRED IMMUNODEFICIENCY SYNDROME
     Dosage: STOCRIN TABS 200
     Route: 048
     Dates: start: 20091105
  4. PEGINTERFERON ALFA-2B [Suspect]
     Indication: HEPATITIS C
     Dosage: PEGINTRON FORM:INJ
     Route: 058
     Dates: start: 20101102, end: 20110322
  5. NELBON [Suspect]
     Indication: INSOMNIA
     Dosage: TAB
     Route: 048
     Dates: start: 20091105
  6. REBETOL [Suspect]
     Indication: HEPATITIS C
     Dosage: CAPS
     Route: 048
     Dates: start: 20101102, end: 20110326
  7. GABAPEN [Suspect]
     Indication: HYPOAESTHESIA
     Dosage: TAB
     Route: 048
     Dates: start: 20100728
  8. TRUVADA [Suspect]
     Indication: ACQUIRED IMMUNODEFICIENCY SYNDROME
     Dosage: TAB 1DF:EMTRICITABINE 200MG, TENOFOVIR 300MG
     Route: 048
     Dates: start: 20091105

REACTIONS (3)
  - MYOCARDIAL INFARCTION [None]
  - HYPOAESTHESIA [None]
  - INSOMNIA [None]
